FAERS Safety Report 8043177-1 (Version None)
Quarter: 2012Q1

REPORT INFORMATION
  Report Type: 
  Country: None (occurrence: None)
  Receive Date: 20120112
  Receipt Date: 20120109
  Transmission Date: 20120608
  Serious: Yes (Hospitalization, Other)
  Sender: FDA-Public Use
  Company Number: FR-BRISTOL-MYERS SQUIBB COMPANY-16272734

PATIENT
  Age: 71 Year
  Sex: Male

DRUGS (5)
  1. IRBESARTAN [Concomitant]
     Dates: start: 20060601
  2. MYCOPHENOLATE MOFETIL (CELLCEPT) [Suspect]
     Indication: RENAL TRANSPLANT
     Dates: start: 20060226
  3. PREDNISONE TAB [Suspect]
     Indication: RENAL TRANSPLANT
     Dates: start: 20060226
  4. PLAVIX [Concomitant]
     Dates: start: 20060707
  5. BELATACEPT [Suspect]
     Indication: RENAL TRANSPLANT
     Dosage: ROUTE:02
     Dates: start: 20060226

REACTIONS (3)
  - RESPIRATORY DISTRESS [None]
  - PNEUMONIA [None]
  - MULTI-ORGAN FAILURE [None]
